FAERS Safety Report 9220531 (Version 2)
Quarter: 2013Q2

REPORT INFORMATION
  Report Type: Spontaneous
  Country: US (occurrence: US)
  Receive Date: 20130409
  Receipt Date: 20130619
  Transmission Date: 20140414
  Serious: Yes (Hospitalization)
  Sender: FDA-Public Use
  Company Number: US-BAYER-2013-043308

PATIENT
  Age: 36 Year
  Sex: Female

DRUGS (9)
  1. YASMIN [Suspect]
     Dosage: UNK
     Dates: start: 20081219, end: 20120310
  2. YAZ [Suspect]
     Dosage: UNK
     Dates: start: 20081219, end: 20120310
  3. OCELLA [Suspect]
     Dosage: UNK
     Dates: start: 20081219, end: 20120310
  4. GIANVI [Suspect]
     Dosage: UNK
     Dates: start: 20090401, end: 20120310
  5. LISINOPRIL [Concomitant]
  6. VYVANSE [Concomitant]
  7. FOLIC ACID [Concomitant]
  8. NEURONTIN [Concomitant]
  9. LEVITOR [Concomitant]

REACTIONS (10)
  - Cerebrovascular accident [None]
  - Aortic thrombosis [None]
  - Peripheral embolism [None]
  - Renal embolism [None]
  - Injury [None]
  - Pain [None]
  - Emotional distress [None]
  - Depression [None]
  - Fear of death [None]
  - Nervousness [None]
